FAERS Safety Report 10179103 (Version 1)
Quarter: 2014Q2

REPORT INFORMATION
  Report Type: Report from Study
  Country: US (occurrence: US)
  Receive Date: 20140519
  Receipt Date: 20140519
  Transmission Date: 20141212
  Serious: Yes (Other)
  Sender: FDA-Public Use
  Company Number: US-ROCHE-1403348

PATIENT
  Age: 17 Year
  Sex: Male
  Weight: 60.1 kg

DRUGS (6)
  1. NUTROPIN AQ [Suspect]
     Indication: BODY HEIGHT BELOW NORMAL
     Route: 058
  2. STRATTERA [Concomitant]
     Route: 048
  3. FLUOXETINE [Concomitant]
     Route: 048
  4. LAMOTRIGINE [Concomitant]
     Route: 048
  5. VYVANSE [Concomitant]
  6. MIRTAZAPINE [Concomitant]
     Route: 048

REACTIONS (5)
  - Growth retardation [Unknown]
  - Vitamin D decreased [Unknown]
  - Insulin-like growth factor increased [Unknown]
  - Arthralgia [Unknown]
  - Gynaecomastia [Recovered/Resolved]
